FAERS Safety Report 4775281-5 (Version None)
Quarter: 2005Q3

REPORT INFORMATION
  Report Type: 
  Country: None (occurrence: None)
  Receive Date: 20050921
  Receipt Date: 20050921
  Transmission Date: 20060218
  Serious: Yes (Hospitalization)
  Sender: FDA-Public Use
  Company Number: None

PATIENT
  Age: 95 Year
  Sex: Female

DRUGS (14)
  1. LISINOPRIL [Suspect]
     Indication: HYPERTENSION
     Dosage: 5MG DAILY PO
     Route: 048
     Dates: start: 20010201, end: 20040210
  2. CELECOXIB 200MG [Suspect]
     Indication: OSTEOARTHRITIS
     Dosage: 200MG DAILY PO
     Route: 048
  3. ZANTAC [Concomitant]
  4. GABAPENTIN [Concomitant]
  5. DIGOXIN [Concomitant]
  6. CELEXA [Concomitant]
  7. CALCIUM GLUCONATE [Concomitant]
  8. DICYCLOMINE [Concomitant]
  9. AMITRIPTYLINE HCL [Concomitant]
  10. OXYBUTYNIN [Concomitant]
  11. SIMVASTATIN [Concomitant]
  12. MULTI-VITAMIN [Concomitant]
  13. TYLENOL (CAPLET) [Concomitant]
  14. COLACE [Concomitant]

REACTIONS (6)
  - ANGIONEUROTIC OEDEMA [None]
  - DYSPHAGIA [None]
  - RESPIRATORY DISTRESS [None]
  - SPEECH DISORDER [None]
  - SWOLLEN TONGUE [None]
  - WHEEZING [None]
